FAERS Safety Report 17414688 (Version 1)
Quarter: 2020Q1

REPORT INFORMATION
  Report Type: Spontaneous
  Country: US (occurrence: US)
  Receive Date: 20200213
  Receipt Date: 20200213
  Transmission Date: 20200409
  Serious: Yes (Other)
  Sender: FDA-Public Use
  Company Number: US-TARO-2020TAR00181

PATIENT

DRUGS (1)
  1. CLOTRIMAZOLE VAGINAL CREAM USP 2% [Suspect]
     Active Substance: CLOTRIMAZOLE
     Indication: FUNGAL INFECTION
     Dosage: UNK
     Route: 067

REACTIONS (5)
  - Device difficult to use [Unknown]
  - Device issue [Unknown]
  - Infection [Unknown]
  - Injury associated with device [Unknown]
  - Vulvovaginal injury [Unknown]
